FAERS Safety Report 7366224-9 (Version None)
Quarter: 2011Q1

REPORT INFORMATION
  Report Type: 
  Country: None (occurrence: None)
  Receive Date: 20110322
  Receipt Date: 20110308
  Transmission Date: 20110831
  Serious: Yes (Hospitalization)
  Sender: FDA-Public Use
  Company Number: US-JNJFOC-20100406995

PATIENT
  Sex: Female
  Weight: 19.5 kg

DRUGS (6)
  1. PREDNISONE [Concomitant]
  2. VALCYTE [Concomitant]
  3. REMICADE [Suspect]
     Indication: CROHN'S DISEASE
     Dosage: TOTAL 6 DOSES
     Route: 042
  4. GANCICLOVIR [Concomitant]
     Route: 042
  5. MERCAPTOPURINE [Concomitant]
     Indication: CROHN'S DISEASE
  6. REMICADE [Suspect]
     Indication: INFLAMMATORY BOWEL DISEASE
     Dosage: TOTAL 6 DOSES
     Route: 042

REACTIONS (2)
  - INFLAMMATORY BOWEL DISEASE [None]
  - CYTOMEGALOVIRUS INFECTION [None]
